FAERS Safety Report 12535757 (Version 2)
Quarter: 2016Q3

REPORT INFORMATION
  Report Type: Spontaneous
  Country: IT (occurrence: IT)
  Receive Date: 20160707
  Receipt Date: 20160719
  Transmission Date: 20161109
  Serious: Yes (Life-Threatening)
  Sender: FDA-Public Use
  Company Number: IT-SUN PHARMACEUTICAL INDUSTRIES LTD-2016RR-119765

PATIENT
  Age: 45 Year
  Sex: Female

DRUGS (1)
  1. LANSOPRAZOLO RANBAXY 15MG CAPSULE RIGIDE GASTRORESISTENTI [Suspect]
     Active Substance: LANSOPRAZOLE
     Indication: GASTRIC DISORDER
     Dosage: 15 MG DAILY
     Route: 048
     Dates: start: 20160528, end: 20160528

REACTIONS (3)
  - Pruritus generalised [Recovering/Resolving]
  - Localised oedema [Recovering/Resolving]
  - Erythema [Recovering/Resolving]

NARRATIVE: CASE EVENT DATE: 20160528
